FAERS Safety Report 15735208 (Version 1)
Quarter: 2018Q4

REPORT INFORMATION
  Report Type: Spontaneous
  Country: US (occurrence: US)
  Receive Date: 20181218
  Receipt Date: 20181218
  Transmission Date: 20190205
  Serious: Yes (Hospitalization, Other)
  Sender: FDA-Public Use
  Company Number: US-DSJP-DSU-2017-141141

PATIENT

DRUGS (2)
  1. BENICAR [Suspect]
     Active Substance: OLMESARTAN MEDOXOMIL
     Indication: PRODUCT USED FOR UNKNOWN INDICATION
     Dosage: 20 MG, QD
     Dates: start: 20050101, end: 20101231
  2. BENICAR HCT [Suspect]
     Active Substance: HYDROCHLOROTHIAZIDE\OLMESARTAN MEDOXOMIL
     Indication: PRODUCT USED FOR UNKNOWN INDICATION
     Dosage: 20/12.5 MG , QD
     Route: 048
     Dates: start: 20050101, end: 20101231

REACTIONS (5)
  - Umbilical hernia [Recovered/Resolved]
  - Small intestinal obstruction [Unknown]
  - Sprue-like enteropathy [Recovering/Resolving]
  - Hiatus hernia [Recovered/Resolved]
  - Diverticulum [Unknown]

NARRATIVE: CASE EVENT DATE: 20050101
